FAERS Safety Report 21486111 (Version 2)
Quarter: 2022Q4

REPORT INFORMATION
  Report Type: Spontaneous
  Country: GB (occurrence: GB)
  Receive Date: 20221020
  Receipt Date: 20221031
  Transmission Date: 20230112
  Serious: Yes (Hospitalization, Other)
  Sender: FDA-Public Use
  Company Number: GB-NOVARTISPH-NVSC2022GB232078

PATIENT
  Age: 5 Year
  Sex: Male

DRUGS (24)
  1. DABRAFENIB [Suspect]
     Active Substance: DABRAFENIB
     Indication: Optic glioma
     Dosage: UNK
     Route: 065
     Dates: start: 20220103, end: 20220107
  2. DABRAFENIB [Suspect]
     Active Substance: DABRAFENIB
     Dosage: UNK
     Route: 065
     Dates: start: 20220113, end: 20220125
  3. DABRAFENIB [Suspect]
     Active Substance: DABRAFENIB
     Dosage: UNK
     Route: 065
     Dates: start: 20220129, end: 20220203
  4. DABRAFENIB [Suspect]
     Active Substance: DABRAFENIB
     Dosage: UNK
     Route: 065
     Dates: start: 20220208, end: 20220211
  5. DABRAFENIB [Suspect]
     Active Substance: DABRAFENIB
     Dosage: UNK
     Route: 065
     Dates: start: 20220215, end: 20220218
  6. DABRAFENIB [Suspect]
     Active Substance: DABRAFENIB
     Dosage: UNK
     Route: 065
     Dates: start: 20220222, end: 20220227
  7. DABRAFENIB [Suspect]
     Active Substance: DABRAFENIB
     Dosage: UNK
     Route: 065
     Dates: start: 20220304, end: 20220308
  8. DABRAFENIB [Suspect]
     Active Substance: DABRAFENIB
     Dosage: UNK
     Route: 065
     Dates: start: 20220314, end: 20220317
  9. DABRAFENIB [Suspect]
     Active Substance: DABRAFENIB
     Dosage: UNK
     Route: 065
     Dates: start: 20220323, end: 20220405
  10. DABRAFENIB [Suspect]
     Active Substance: DABRAFENIB
     Dosage: UNK
     Route: 065
     Dates: start: 20220408, end: 20220416
  11. DABRAFENIB [Suspect]
     Active Substance: DABRAFENIB
     Dosage: UNK
     Route: 065
     Dates: start: 20220420, end: 20220425
  12. DABRAFENIB [Suspect]
     Active Substance: DABRAFENIB
     Dosage: 40 MG
     Route: 065
     Dates: start: 20220729
  13. TRAMETINIB [Suspect]
     Active Substance: TRAMETINIB
     Indication: Optic glioma
     Dosage: UNK
     Route: 065
     Dates: start: 20220103, end: 20220107
  14. TRAMETINIB [Suspect]
     Active Substance: TRAMETINIB
     Dosage: UNK
     Route: 065
     Dates: start: 20220113, end: 20220125
  15. TRAMETINIB [Suspect]
     Active Substance: TRAMETINIB
     Dosage: UNK
     Route: 065
     Dates: start: 20220129, end: 20220203
  16. TRAMETINIB [Suspect]
     Active Substance: TRAMETINIB
     Dosage: UNK
     Route: 065
     Dates: start: 20220208, end: 20220211
  17. TRAMETINIB [Suspect]
     Active Substance: TRAMETINIB
     Dosage: UNK
     Route: 065
     Dates: start: 20220215, end: 20220218
  18. TRAMETINIB [Suspect]
     Active Substance: TRAMETINIB
     Dosage: UNK
     Route: 065
     Dates: start: 20220222, end: 20220227
  19. TRAMETINIB [Suspect]
     Active Substance: TRAMETINIB
     Dosage: UNK
     Route: 065
     Dates: start: 20220304, end: 20220308
  20. TRAMETINIB [Suspect]
     Active Substance: TRAMETINIB
     Dosage: UNK
     Route: 065
     Dates: start: 20220314, end: 20220317
  21. TRAMETINIB [Suspect]
     Active Substance: TRAMETINIB
     Dosage: UNK
     Route: 065
     Dates: start: 20220323, end: 20220405
  22. TRAMETINIB [Suspect]
     Active Substance: TRAMETINIB
     Dosage: UNK
     Route: 065
     Dates: start: 20220408, end: 20220416
  23. TRAMETINIB [Suspect]
     Active Substance: TRAMETINIB
     Dosage: UNK
     Route: 065
     Dates: start: 20220420, end: 20220425
  24. TRAMETINIB [Suspect]
     Active Substance: TRAMETINIB
     Dosage: 0.375 MG
     Route: 065
     Dates: start: 20220729

REACTIONS (6)
  - Oesophagitis [Unknown]
  - Gastrointestinal haemorrhage [Recovered/Resolved]
  - Melaena [Unknown]
  - Escherichia infection [Unknown]
  - Skin discolouration [Unknown]
  - Product use in unapproved indication [Unknown]
